FAERS Safety Report 5007029-3 (Version None)
Quarter: 2006Q1

REPORT INFORMATION
  Report Type: 
  Country: None (occurrence: None)
  Receive Date: 20060320
  Receipt Date: 20050729
  Transmission Date: 20060701
  Serious: Yes (Other)
  Sender: FDA-Public Use
  Company Number: 2005-07-2166

PATIENT

DRUGS (11)
  1. PEG-INTRON [Suspect]
  2. AMARYL [Concomitant]
  3. SYNTHROID [Concomitant]
  4. THEOPHYLLINE [Concomitant]
  5. PROTONIX [Concomitant]
  6. GUAIFENESIN [Concomitant]
  7. LEXAPRO [Concomitant]
  8. LANTUS [Concomitant]
  9. INSULIN-REGUALR [Concomitant]
  10. REMERON [Concomitant]
  11. FORADIL [Concomitant]

REACTIONS (1)
  - CONVULSION [None]
